FAERS Safety Report 7353122-X (Version None)
Quarter: 2011Q1

REPORT INFORMATION
  Report Type: 
  Country: None (occurrence: None)
  Receive Date: 20110315
  Receipt Date: 20110301
  Transmission Date: 20110831
  Serious: Yes (Hospitalization, Other)
  Sender: FDA-Public Use
  Company Number: US-ELI_LILLY_AND_COMPANY-US201103001039

PATIENT
  Sex: Female

DRUGS (4)
  1. SOTALOL HYDROCHLORIDE [Concomitant]
  2. EFFIENT [Suspect]
     Indication: STENT PLACEMENT
     Dosage: 10 MG, UNKNOWN
     Dates: start: 20110101
  3. COUMADIN [Concomitant]
  4. ASPIRIN [Concomitant]

REACTIONS (5)
  - NASOPHARYNGITIS [None]
  - VEIN DISORDER [None]
  - DIARRHOEA [None]
  - HOSPITALISATION [None]
  - CONTUSION [None]
